FAERS Safety Report 18918476 (Version 5)
Quarter: 2021Q3

REPORT INFORMATION
  Report Type: Spontaneous
  Country: TR (occurrence: TR)
  Receive Date: 20210219
  Receipt Date: 20210714
  Transmission Date: 20211014
  Serious: Yes (Life-Threatening, Hospitalization, Other)
  Sender: FDA-Public Use
  Company Number: TR-US-PROVELL PHARMACEUTICALS LLC-9217503

PATIENT
  Age: 29 Year
  Sex: Female

DRUGS (1)
  1. EUTHYROX [Suspect]
     Active Substance: LEVOTHYROXINE SODIUM
     Indication: THYROID FUNCTION TEST ABNORMAL
     Route: 048
     Dates: start: 20200302, end: 20200514

REACTIONS (16)
  - Cardiac failure [Recovered/Resolved]
  - Hot flush [Recovered/Resolved]
  - Dyspepsia [Recovered/Resolved]
  - Hyperhidrosis [Recovered/Resolved]
  - Cardiac arrest [Recovered/Resolved]
  - Intracranial pressure increased [Recovering/Resolving]
  - Decreased appetite [Recovering/Resolving]
  - Restlessness [Recovered/Resolved]
  - Atrioventricular block [Recovering/Resolving]
  - Weight decreased [Recovered/Resolved]
  - Headache [Recovered/Resolved]
  - Arrhythmia [Recovering/Resolving]
  - Nausea [Recovering/Resolving]
  - Psychomotor hyperactivity [Recovered/Resolved]
  - Constipation [Recovered/Resolved]
  - Stress [Recovered/Resolved]

NARRATIVE: CASE EVENT DATE: 2020
